FAERS Safety Report 6107867-X (Version None)
Quarter: 2009Q1

REPORT INFORMATION
  Report Type: 
  Country: None (occurrence: None)
  Receive Date: 20090302
  Receipt Date: 20090223
  Transmission Date: 20090719
  Serious: Yes (Hospitalization)
  Sender: FDA-Public Use
  Company Number: 118328

PATIENT
  Age: 54 Year
  Sex: Female
  Weight: 112.0385 kg

DRUGS (18)
  1. NICOTINE POLACRILEX [Suspect]
     Indication: SMOKING CESSATION THERAPY
     Dosage: 1 LOZENGE/ 2-3 PER DAY/ ORAL
     Route: 048
     Dates: start: 20090104, end: 20090203
  2. NICOTINE POLACRILEX [Suspect]
     Indication: SMOKING CESSATION THERAPY
     Dosage: 1 LOZENGE/ 2-3 PER DAY/ ORAL
     Route: 048
     Dates: end: 20081231
  3. AMBIEN [Concomitant]
  4. LASIX [Concomitant]
  5. METOPROLOL [Concomitant]
  6. TRAZODONE HCL [Concomitant]
  7. SINGULAIR [Concomitant]
  8. THEOPHYLLINE [Concomitant]
  9. SPIROLONOLACTONE [Concomitant]
  10. IMDUR [Concomitant]
  11. POTASSIUM SUPPLEMENT [Concomitant]
  12. ASPIRIN [Concomitant]
  13. ZYPREXA [Concomitant]
  14. MS CONTIN [Concomitant]
  15. OXYCODONE HCL [Concomitant]
  16. NITROGLYCERIN [Concomitant]
  17. METOLAZONE [Concomitant]
  18. CYMBALTA [Concomitant]

REACTIONS (6)
  - BLOOD CHOLESTEROL INCREASED [None]
  - BLOOD GLUCOSE INCREASED [None]
  - BLOOD MAGNESIUM DECREASED [None]
  - BLOOD POTASSIUM DECREASED [None]
  - CHEST PAIN [None]
  - DEHYDRATION [None]
